FAERS Safety Report 8252833-1 (Version None)
Quarter: 2012Q2

REPORT INFORMATION
  Report Type: 
  Country: None (occurrence: None)
  Receive Date: 20120402
  Receipt Date: 20101215
  Transmission Date: 20120825
  Serious: No
  Sender: FDA-Public Use
  Company Number: US-ABBOTT-10P-163-0802023-00

PATIENT
  Age: 41 Year
  Sex: Male

DRUGS (1)
  1. TESTOSTERONE [Suspect]
     Indication: BLOOD TESTOSTERONE DECREASED
     Dosage: DAILY DOSE:  UNKNOWN, AS USED: 2.5 GRAM(S)
     Route: 062
     Dates: start: 20050101

REACTIONS (3)
  - BACK PAIN [None]
  - CHEST PAIN [None]
  - ARRHYTHMIA [None]
